FAERS Safety Report 7831905-7 (Version None)
Quarter: 2011Q4

REPORT INFORMATION
  Report Type: 
  Country: None (occurrence: None)
  Receive Date: 20111021
  Receipt Date: 20111019
  Transmission Date: 20120403
  Serious: Yes (Life-Threatening, Hospitalization)
  Sender: FDA-Public Use
  Company Number: US-B.I. PHARMACEUTICALS,INC./RIDGEFIELD-2011-BP-20546BP

PATIENT
  Sex: Female
  Weight: 58.97 kg

DRUGS (12)
  1. PRADAXA [Suspect]
     Indication: ATRIAL FIBRILLATION
     Dosage: 300 MG
     Route: 048
     Dates: start: 20101101, end: 20110820
  2. LASIX [Concomitant]
     Dosage: 40 MG
  3. K+ [Concomitant]
  4. AMLODIPINE [Concomitant]
  5. NEXIUM [Concomitant]
  6. LISINOPRIL [Concomitant]
  7. SINTROM [Concomitant]
  8. CRESTOR [Concomitant]
     Indication: DYSLIPIDAEMIA
  9. METFORMIN HCL [Concomitant]
     Indication: DIABETES MELLITUS
  10. LOPRESSOR XL [Concomitant]
  11. CYMBALTA [Concomitant]
  12. ASPIRIN [Concomitant]
     Dosage: 81 MG

REACTIONS (11)
  - PLEURAL EFFUSION [None]
  - ARTERIAL THROMBOSIS LIMB [None]
  - HAEMATOCRIT DECREASED [None]
  - DIVERTICULUM [None]
  - UPPER GASTROINTESTINAL HAEMORRHAGE [None]
  - ASTHENIA [None]
  - GASTROOESOPHAGEAL REFLUX DISEASE [None]
  - DIZZINESS [None]
  - GASTRITIS [None]
  - ABDOMINAL PAIN [None]
  - IRON DEFICIENCY [None]
